FAERS Safety Report 19903999 (Version 4)
Quarter: 2021Q4

REPORT INFORMATION
  Report Type: Spontaneous
  Country: US (occurrence: US)
  Receive Date: 20211001
  Receipt Date: 20211014
  Transmission Date: 20220303
  Serious: No
  Sender: FDA-Public Use
  Company Number: US-UNITED THERAPEUTICS-UNT-2021-019130

PATIENT
  Age: 72 Year
  Sex: Male
  Weight: 81.63 kg

DRUGS (3)
  1. TYVASO [Suspect]
     Active Substance: TREPROSTINIL
     Indication: Pulmonary arterial hypertension
     Dosage: UNK
     Dates: start: 20210913
  2. TYVASO [Suspect]
     Active Substance: TREPROSTINIL
     Dosage: 18-54 ?G, QID
     Dates: start: 202109, end: 202109
  3. TYVASO [Suspect]
     Active Substance: TREPROSTINIL
     Dosage: 60-120 ?G, QID
     Dates: start: 202109, end: 20211003

REACTIONS (14)
  - Oedema peripheral [Unknown]
  - Anxiety [Unknown]
  - Depression [Unknown]
  - Dizziness [Unknown]
  - Dyspnoea exertional [Unknown]
  - Pain [Unknown]
  - Irritability [Unknown]
  - Fatigue [Unknown]
  - Constipation [Unknown]
  - Heart rate increased [Unknown]
  - Myalgia [Unknown]
  - Drug intolerance [Unknown]
  - Chest discomfort [Unknown]
  - Off label use [Recovered/Resolved]

NARRATIVE: CASE EVENT DATE: 20210101
